FAERS Safety Report 8897258 (Version 1)
Quarter: 2012Q4

REPORT INFORMATION
  Report Type: Spontaneous
  Country: TR (occurrence: None)
  Receive Date: 20121105
  Receipt Date: 20121105
  Transmission Date: 20130627
  Serious: Yes (Other)
  Sender: FDA-Public Use
  Company Number: DSA_60466_2012

PATIENT

DRUGS (6)
  1. FLUOROURACIL (FLUOROURACIL) [Suspect]
     Indication: GASTRIC CANCER
     Dosage: 400 mg/m2 as 2-hour infusion on day 1, every other week
  2. FLUOROURACIL (FLUOROURACIL) [Suspect]
     Indication: GASTRIC CANCER
     Dosage: 2400 mg/m2 as 46-hour continuous intravenous  infusion; every other week
  3. IRINOTECAN [Suspect]
     Indication: GASTRIC CANCER
     Dosage: 180 mg/m2 as 2-hour infusion; every other week
  4. LEUCOVORIN [Suspect]
     Indication: GASTRIC CANCER
     Dosage: 200 mg/m2 as 2-hour infusion; every other week
  5. DEXAMETHASONE [Concomitant]
  6. METOCLOPRAMIDE [Concomitant]

REACTIONS (2)
  - Neutropenia [None]
  - Haematotoxicity [None]
